FAERS Safety Report 7887286-6 (Version None)
Quarter: 2011Q4

REPORT INFORMATION
  Report Type: 
  Country: None (occurrence: None)
  Receive Date: 20111102
  Receipt Date: 20110717
  Transmission Date: 20120403
  Serious: No
  Sender: FDA-Public Use
  Company Number: US-AMGEN-USASP2011036216

PATIENT
  Sex: Female

DRUGS (2)
  1. ENBREL [Suspect]
     Indication: JUVENILE ARTHRITIS
     Dosage: 25 MG, Q2WK
     Dates: start: 20110519
  2. METHOTREXATE [Concomitant]
     Dates: start: 20110501

REACTIONS (2)
  - INCREASED APPETITE [None]
  - WEIGHT INCREASED [None]
